APPROVED DRUG PRODUCT: PANTOPRAZOLE SODIUM
Active Ingredient: PANTOPRAZOLE SODIUM
Strength: EQ 40MG BASE/VIAL
Dosage Form/Route: INJECTABLE;INTRAVENOUS
Application: A077674 | Product #001
Applicant: SUN PHARMACEUTICAL INDUSTRIES LTD
Approved: Aug 19, 2019 | RLD: No | RS: No | Type: DISCN